FAERS Safety Report 10171877 (Version 1)
Quarter: 2014Q2

REPORT INFORMATION
  Report Type: Spontaneous
  Country: JP (occurrence: None)
  Receive Date: 20140512
  Receipt Date: 20140512
  Transmission Date: 20141212
  Serious: Yes (Hospitalization)
  Sender: FDA-Public Use
  Company Number: INT_00381_2014

PATIENT
  Age: 59 Year
  Sex: Male

DRUGS (2)
  1. CISPLATIN (CISPLATIN) (HQ SPECIALTY) [Suspect]
     Indication: LUNG ADENOCARCINOMA
     Dosage: (DF)
  2. PEMETREXED [Suspect]
     Indication: LUNG ADENOCARCINOMA
     Dosage: (DF)

REACTIONS (4)
  - Colonic abscess [None]
  - Bacterial infection [None]
  - Escherichia infection [None]
  - Appendicitis perforated [None]
